FAERS Safety Report 4626975-3 (Version None)
Quarter: 2005Q1

REPORT INFORMATION
  Report Type: 
  Country: None (occurrence: None)
  Receive Date: 20050331
  Receipt Date: 20050324
  Transmission Date: 20050727
  Serious: Yes (Hospitalization, Disabling, Other)
  Sender: FDA-Public Use
  Company Number: 2004040893

PATIENT
  Age: 61 Year
  Sex: Female
  Weight: 75 kg

DRUGS (6)
  1. LIPITOR [Suspect]
     Indication: HYPERCHOLESTEROLAEMIA
     Dosage: 10 MG (10 MG, 1 IN 1 D), ORAL
     Route: 048
     Dates: start: 20030206, end: 20030815
  2. METFORMIN HCL [Concomitant]
  3. CANDESARTAN CILEXETIL (CANDESARTAN CILEXETIL) [Concomitant]
  4. ALL OTHER THERAPEUTIC PRODUCTS (ALL OTHER THERAPEUTIC PRODUCTS) [Concomitant]
  5. ESTRADIOL [Concomitant]
  6. THYROXIN (LEVOTHYROXINE SODIUM) [Concomitant]

REACTIONS (31)
  - ARTHRALGIA [None]
  - BURSITIS [None]
  - C-REACTIVE PROTEIN INCREASED [None]
  - CAROTID ARTERY DISEASE [None]
  - CONTUSION [None]
  - DIARRHOEA [None]
  - DIFFICULTY IN WALKING [None]
  - ECONOMIC PROBLEM [None]
  - FEELING ABNORMAL [None]
  - GAIT DISTURBANCE [None]
  - HAEMATOMA [None]
  - HYPOAESTHESIA [None]
  - INFECTION [None]
  - INJURY [None]
  - METABOLIC SYNDROME [None]
  - MUSCLE RUPTURE [None]
  - MUSCLE SPASMS [None]
  - NEURALGIA [None]
  - NEUROPATHIC PAIN [None]
  - OEDEMA [None]
  - PAIN IN EXTREMITY [None]
  - PARAESTHESIA [None]
  - PARESIS [None]
  - PERONEAL NERVE PALSY [None]
  - RED BLOOD CELL SEDIMENTATION RATE INCREASED [None]
  - SENSORY DISTURBANCE [None]
  - SURGICAL PROCEDURE REPEATED [None]
  - SWELLING [None]
  - TENDON RUPTURE [None]
  - THERAPY NON-RESPONDER [None]
  - WOUND INFECTION STAPHYLOCOCCAL [None]
